FAERS Safety Report 21219289 (Version 1)
Quarter: 2022Q3

REPORT INFORMATION
  Report Type: Other
  Country: DE (occurrence: DE)
  Receive Date: 20220817
  Receipt Date: 20220817
  Transmission Date: 20221026
  Serious: Yes (Death, Other)
  Sender: FDA-Public Use
  Company Number: None

PATIENT
  Age: 80 Year
  Sex: Male
  Weight: 69 kg

DRUGS (87)
  1. METRONIDAZOLE [Suspect]
     Active Substance: METRONIDAZOLE
     Indication: Bacterial infection
     Dosage: 500 MILLIGRAM, EVERY 8 HOURS, (FILM COATED TABLET)
     Route: 048
  2. POTASSIUM CHLORIDE [Suspect]
     Active Substance: POTASSIUM CHLORIDE
     Indication: Product used for unknown indication
     Dosage: UNK
     Route: 065
  3. GABAPENTIN [Suspect]
     Active Substance: GABAPENTIN
     Indication: Neuralgia
     Dosage: 100 MILLIGRAM, QD
     Route: 048
  4. OSELTAMIVIR [Suspect]
     Active Substance: OSELTAMIVIR
     Indication: Product used for unknown indication
     Dosage: UNK
     Route: 054
  5. CALCITRIOL [Suspect]
     Active Substance: CALCITRIOL
     Indication: Vitamin D
     Dosage: 0.25 MICROGRAM, QD, (PROLONGED-RELEASE TABLET)
     Route: 048
  6. MELATONIN [Suspect]
     Active Substance: MELATONIN
     Indication: Sleep disorder therapy
     Dosage: 3 MILLIGRAM, QD, (CAPSULE SOFT)
     Route: 048
  7. MELATONIN [Suspect]
     Active Substance: MELATONIN
     Dosage: 3 MILLIGRAM, QD,  (CAPSULE SOFT)
     Route: 048
  8. MELATONIN [Suspect]
     Active Substance: MELATONIN
     Dosage: 3 MILLIGRAM, QD,  (CAPSULE SOFT)
     Route: 048
  9. POLYETHYLENE GLYCOL 3350\POTASSIUM CHLORIDE\SODIUM BICARBONATE\SODIUM [Suspect]
     Active Substance: POLYETHYLENE GLYCOL 3350\POTASSIUM CHLORIDE\SODIUM BICARBONATE\SODIUM CHLORIDE
     Indication: Constipation
     Dosage: 17 GRAM, QD
     Route: 048
  10. POLYETHYLENE GLYCOL 3350\POTASSIUM CHLORIDE\SODIUM BICARBONATE\SODIUM [Suspect]
     Active Substance: POLYETHYLENE GLYCOL 3350\POTASSIUM CHLORIDE\SODIUM BICARBONATE\SODIUM CHLORIDE
     Dosage: 17 GRAM, QD
     Route: 048
  11. POLYETHYLENE GLYCOL 3350\POTASSIUM CHLORIDE\SODIUM BICARBONATE\SODIUM [Suspect]
     Active Substance: POLYETHYLENE GLYCOL 3350\POTASSIUM CHLORIDE\SODIUM BICARBONATE\SODIUM CHLORIDE
     Dosage: UNK
     Route: 048
  12. WARFARIN [Suspect]
     Active Substance: WARFARIN
     Indication: Thrombosis
     Dosage: 2 GRAM, QD
     Route: 048
  13. WARFARIN [Suspect]
     Active Substance: WARFARIN
     Dosage: UNK, PER DAY
     Route: 048
  14. WARFARIN [Suspect]
     Active Substance: WARFARIN
     Dosage: 2 GRAM, QD
     Route: 048
  15. ALLOPURINOL [Suspect]
     Active Substance: ALLOPURINOL
     Indication: Blood uric acid increased
     Dosage: 1 DOSAGE FORM, QD, (TABLET UNCOATED)
     Route: 048
  16. ALLOPURINOL [Suspect]
     Active Substance: ALLOPURINOL
     Dosage: 1 DOSAGE FORM, QD, (TABLET UNCOATED)
     Route: 048
  17. ALLOPURINOL [Suspect]
     Active Substance: ALLOPURINOL
     Dosage: 1 DOSAGE FORM, QD,(TABLET UNCOATED)
     Route: 048
  18. ELECTROLYTES NOS\POLYETHYLENE GLYCOL 3350 [Suspect]
     Active Substance: ELECTROLYTES NOS\POLYETHYLENE GLYCOL 3350
     Indication: Constipation
     Dosage: 17 GRAM, QD
     Route: 048
  19. DISODIUM HYDROGEN CITRATE [Suspect]
     Active Substance: DISODIUM HYDROGEN CITRATE
     Indication: Thrombosis
     Dosage: UNK
     Route: 065
  20. .BETA.-CAROTENE [Suspect]
     Active Substance: .BETA.-CAROTENE
     Indication: Product used for unknown indication
     Dosage: UNK
     Route: 065
  21. PYRIDOXINE HYDROCHLORIDE [Suspect]
     Active Substance: PYRIDOXINE HYDROCHLORIDE
     Indication: Vitamin supplementation
     Dosage: UNK, (1 DAY)
     Route: 048
  22. HYDROMORPHONE HYDROCHLORIDE [Suspect]
     Active Substance: HYDROMORPHONE HYDROCHLORIDE
     Indication: Analgesic therapy
     Dosage: UNK
     Route: 058
  23. UMECLIDINIUM BROMIDE\VILANTEROL TRIFENATATE [Suspect]
     Active Substance: UMECLIDINIUM BROMIDE\VILANTEROL TRIFENATATE
     Indication: Dyspnoea
     Dosage: 1 INTERNATIONAL UNIT, QD
     Route: 048
  24. PHYTONADIONE [Suspect]
     Active Substance: PHYTONADIONE
     Indication: Vitamin supplementation
     Dosage: 5 MILLIGRAM, PRN
     Route: 042
  25. ATROVENT [Suspect]
     Active Substance: IPRATROPIUM BROMIDE
     Indication: Dyspnoea
     Dosage: UNK, QID
  26. ATROVENT [Suspect]
     Active Substance: IPRATROPIUM BROMIDE
     Indication: Sleep disorder therapy
  27. SODIUM FERRIC GLUCONATE COMPLEX [Suspect]
     Active Substance: SODIUM FERRIC GLUCONATE COMPLEX
     Indication: Iron deficiency
     Dosage: 4.64 MILLIGRAM, EVERY 4 WEEKS
     Route: 042
  28. SODIUM FERRIC GLUCONATE COMPLEX [Suspect]
     Active Substance: SODIUM FERRIC GLUCONATE COMPLEX
     Dosage: 125 MILLIGRAM, EVERY 4 WEEKS
     Route: 042
  29. LANTHANUM CARBONATE [Suspect]
     Active Substance: LANTHANUM CARBONATE
     Indication: Blood phosphorus increased
     Dosage: 500 MILLIGRAM, PRN
     Route: 048
  30. VASOPRESSIN [Suspect]
     Active Substance: VASOPRESSIN
     Indication: Drug therapy
     Dosage: UNK
     Route: 042
  31. SIMVASTATIN [Suspect]
     Active Substance: SIMVASTATIN
     Indication: Blood cholesterol increased
     Dosage: 40 MILLIGRAM, QD, (TABLET UNCOATED) (DEXTROSE 60%)
     Route: 048
  32. SIMVASTATIN [Suspect]
     Active Substance: SIMVASTATIN
     Dosage: 40 MILLIGRAM, QD, (TABLET UNCOATED) (DEXTROSE 60%)
     Route: 048
  33. HERBALS\PAULLINIA CUPANA SEED [Suspect]
     Active Substance: HERBALS\PAULLINIA CUPANA SEED
     Indication: Nutritional supplementation
     Dosage: UNK
     Route: 042
  34. HYDROMORPHONE [Suspect]
     Active Substance: HYDROMORPHONE
     Indication: Analgesic therapy
     Dosage: 1 MILLIGRAM, EVERY 4 HRS
     Route: 058
  35. HYDROMORPHONE [Suspect]
     Active Substance: HYDROMORPHONE
     Dosage: 6 MILLIGRAM, EVERY 6 HRS, (40MG,Q8H 6MG,QID)
     Route: 058
  36. HYDROMORPHONE [Suspect]
     Active Substance: HYDROMORPHONE
     Dosage: 1 MILLIGRAM, EVERY 4 HRS
     Route: 065
  37. HEPARIN SODIUM [Suspect]
     Active Substance: HEPARIN SODIUM
     Indication: Anticoagulant therapy
     Dosage: 250 MILLILITER
     Route: 042
  38. HEPARIN SODIUM [Suspect]
     Active Substance: HEPARIN SODIUM
     Dosage: 50 MILLILITER, PRN
     Route: 065
  39. SODIUM FERRIC GLUCONATE COMPLEX [Suspect]
     Active Substance: SODIUM FERRIC GLUCONATE COMPLEX
     Indication: Iron deficiency
     Dosage: 4.64 MILLIGRAM, EVERY 4 WEEKS
     Route: 042
  40. SODIUM FERRIC GLUCONATE COMPLEX [Suspect]
     Active Substance: SODIUM FERRIC GLUCONATE COMPLEX
     Dosage: 125 MILLIGRAM, EVERY 4 WEEKS
     Route: 042
  41. FLUTICASONE FUROATE\VILANTEROL TRIFENATATE [Suspect]
     Active Substance: FLUTICASONE FUROATE\VILANTEROL TRIFENATATE
     Indication: Product used for unknown indication
     Dosage: UNK
     Route: 065
  42. ARANESP [Suspect]
     Active Substance: DARBEPOETIN ALFA
     Indication: Anaemia
     Dosage: 0.71 MICROGRAM PER 2 WEEKS, (QOW), (SOLUTION INTRAVENOUS)
     Route: 042
  43. ARANESP [Suspect]
     Active Substance: DARBEPOETIN ALFA
     Dosage: 0.71 MICROGRAM PER 2 WEEK (QOW), (SOLUTION INTRAVENOUS)
     Route: 042
  44. ARANESP [Suspect]
     Active Substance: DARBEPOETIN ALFA
     Dosage: 0.71 MICROGRAM PER 2 WEEKS, (QOW), (SOLUTION INTRAVENOUS)
     Route: 042
  45. ARANESP [Suspect]
     Active Substance: DARBEPOETIN ALFA
     Dosage: 10 MICROGRAM PER 2 WEEKS
     Route: 042
  46. SODIUM PHOSPHATE [Suspect]
     Active Substance: SODIUM PHOSPHATE
     Indication: Constipation
     Dosage: UNK
     Route: 065
  47. INSULIN ASPART [Suspect]
     Active Substance: INSULIN ASPART
     Indication: Diabetes mellitus
     Dosage: UNK
     Route: 058
  48. INSULIN ASPART [Suspect]
     Active Substance: INSULIN ASPART
     Dosage: UNK
     Route: 058
  49. IPRATROPIUM BROMIDE\XYLOMETAZOLINE HYDROCHLORIDE [Suspect]
     Active Substance: IPRATROPIUM BROMIDE\XYLOMETAZOLINE HYDROCHLORIDE
     Indication: Dyspnoea
     Dosage: UNK
  50. SODIUM PICOSULFATE [Suspect]
     Active Substance: SODIUM PICOSULFATE
     Indication: Constipation
     Dosage: 10 MILLIGRAM, PRN
     Route: 065
  51. SODIUM PICOSULFATE [Suspect]
     Active Substance: SODIUM PICOSULFATE
     Indication: Analgesic therapy
     Dosage: 10 MILLIGRAM, PRN
     Route: 054
  52. DOBUTAMINE [Suspect]
     Active Substance: DOBUTAMINE HYDROCHLORIDE
     Indication: Cardiogenic shock
     Dosage: UNK
     Route: 042
  53. ONDANSETRON [Suspect]
     Active Substance: ONDANSETRON
     Indication: Nausea
     Dosage: 40 MILLIGRAM, EVERY 8 HOURS
     Route: 042
  54. ONDANSETRON [Suspect]
     Active Substance: ONDANSETRON
     Indication: Vomiting
     Dosage: UNK, (40 MG, Q8H 12 MG, Q8H)
     Route: 042
  55. ONDANSETRON [Suspect]
     Active Substance: ONDANSETRON
     Dosage: 12 MILLIGRAM, EVERY 8 HOURS
     Route: 042
  56. CEFTRIAXONE [Suspect]
     Active Substance: CEFTRIAXONE
     Indication: Bacterial infection
     Dosage: 2 GRAM, QD
     Route: 042
  57. AMIODARONE [Suspect]
     Active Substance: AMIODARONE
     Indication: Ventricular fibrillation
     Dosage: 150 MILLIGRAM, DAILY
     Route: 042
  58. AMIODARONE [Suspect]
     Active Substance: AMIODARONE
     Indication: Drug therapy
  59. BETAMETHASONE [Suspect]
     Active Substance: BETAMETHASONE
     Indication: Swelling
     Dosage: UNK UNK, PRN
     Route: 061
  60. ACETAMINOPHEN [Suspect]
     Active Substance: ACETAMINOPHEN
     Indication: Analgesic therapy
     Dosage: 650 MILLIGRAM, QD
     Route: 048
  61. SODIUM PHOSPHATE, MONOBASIC [Suspect]
     Active Substance: SODIUM PHOSPHATE, MONOBASIC
     Indication: Constipation
     Dosage: 133 MILLILITER, PRN
     Route: 054
  62. DISTIGMINE BROMIDE [Suspect]
     Active Substance: DISTIGMINE BROMIDE
     Indication: Dyspnoea
     Dosage: 1 INTERNATIONAL UNIT, QD
     Route: 048
  63. ASCORBIC ACID [Suspect]
     Active Substance: ASCORBIC ACID
     Indication: Vitamin supplementation
     Dosage: UNK
     Route: 065
  64. ASCORBIC ACID [Suspect]
     Active Substance: ASCORBIC ACID
     Indication: Constipation
  65. DALTEPARIN SODIUM [Suspect]
     Active Substance: DALTEPARIN SODIUM
     Indication: Pulmonary embolism
     Dosage: UNK
     Route: 065
  66. POTASSIUM CHLORIDE\RIBOFLAVIN 5^-PHOSPHATE SODIUM [Suspect]
     Active Substance: POTASSIUM CHLORIDE\RIBOFLAVIN 5^-PHOSPHATE SODIUM
     Indication: Product used for unknown indication
     Dosage: UNK
     Route: 065
  67. UMECLIDINIUM BROMIDE [Suspect]
     Active Substance: UMECLIDINIUM BROMIDE
     Indication: Dyspnoea
     Dosage: UNK
     Route: 048
  68. DEXTROSE [Suspect]
     Active Substance: DEXTROSE
     Indication: Nutritional supplementation
     Dosage: 12.5 GRAM, PRN
     Route: 042
  69. DEXTROSE [Suspect]
     Active Substance: DEXTROSE
     Dosage: 12.5 GRAM, PRN
     Route: 042
  70. METAMIZOLE SODIUM [Suspect]
     Active Substance: METAMIZOLE SODIUM
     Indication: Vitamin supplementation
     Dosage: UNK
     Route: 042
  71. CARBOHYDRATES\FATTY ACIDS\MINERALS\PROTEIN\VITAMINS [Suspect]
     Active Substance: CARBOHYDRATES\FATTY ACIDS\MINERALS\PROTEIN\VITAMINS
     Indication: Vitamin supplementation
     Dosage: 5 MILLIGRAM
     Route: 042
  72. CARBOHYDRATES\FATTY ACIDS\MINERALS\PROTEIN\VITAMINS [Suspect]
     Active Substance: CARBOHYDRATES\FATTY ACIDS\MINERALS\PROTEIN\VITAMINS
     Dosage: 5 MILLIGRAM
     Route: 065
  73. AMIODARONE HYDROCHLORIDE [Suspect]
     Active Substance: AMIODARONE HYDROCHLORIDE
     Indication: Ventricular fibrillation
     Dosage: 150 MILLIGRAM, QD
     Route: 042
  74. AMIODARONE HYDROCHLORIDE [Suspect]
     Active Substance: AMIODARONE HYDROCHLORIDE
     Indication: Drug therapy
  75. DULCOLAX (BISACODYL) [Suspect]
     Active Substance: BISACODYL
     Indication: Constipation
     Dosage: 10 MILLIGRAM, PRN
     Route: 054
  76. DEXTROSE\HEPARIN [Suspect]
     Active Substance: DEXTROSE\HEPARIN
     Indication: Product used for unknown indication
     Dosage: UNK
     Route: 065
  77. LANSOPRAZOLE [Suspect]
     Active Substance: LANSOPRAZOLE
     Indication: Antacid therapy
     Dosage: 30 MILLIGRAM, QD
     Route: 048
  78. LANSOPRAZOLE [Suspect]
     Active Substance: LANSOPRAZOLE
     Dosage: 30 MILLIGRAM, QD
     Route: 048
  79. LANSOPRAZOLE [Suspect]
     Active Substance: LANSOPRAZOLE
     Dosage: 30 MILLIGRAM, QD
     Route: 048
  80. ALBUTEROL [Suspect]
     Active Substance: ALBUTEROL
     Indication: Chronic obstructive pulmonary disease
     Dosage: UNK UNK, QID
  81. INSULIN DEGLUDEC [Suspect]
     Active Substance: INSULIN DEGLUDEC
     Indication: Diabetes mellitus
     Dosage: UNK
     Route: 058
  82. DEXTROSE\SODIUM CHLORIDE [Suspect]
     Active Substance: DEXTROSE\SODIUM CHLORIDE
     Indication: Nutritional supplementation
     Dosage: UNK
     Route: 042
  83. VILANTEROL TRIFENATATE [Suspect]
     Active Substance: VILANTEROL TRIFENATATE
     Indication: Product used for unknown indication
     Dosage: UNK
     Route: 065
  84. NOREPINEPHRINE [Suspect]
     Active Substance: NOREPINEPHRINE
     Indication: Stress
     Dosage: UNK
     Route: 042
  85. NOREPINEPHRINE [Suspect]
     Active Substance: NOREPINEPHRINE
     Dosage: UNK
     Route: 042
  86. NOREPINEPHRINE [Suspect]
     Active Substance: NOREPINEPHRINE
     Dosage: UNK
     Route: 042
  87. SODIUM CITRATE [Suspect]
     Active Substance: SODIUM CITRATE
     Indication: Thrombosis
     Dosage: 2.5 MILLILITER, PRN, (4GM/100ML SOLUTION UNASSIGNED)
     Route: 065

REACTIONS (17)
  - Multiple organ dysfunction syndrome [Fatal]
  - Appendicolith [Fatal]
  - Ventricular fibrillation [Fatal]
  - Vomiting [Fatal]
  - Stress [Fatal]
  - Cardiogenic shock [Fatal]
  - Hyponatraemia [Fatal]
  - Abdominal distension [Fatal]
  - General physical health deterioration [Fatal]
  - Nausea [Fatal]
  - Constipation [Fatal]
  - Abdominal pain [Fatal]
  - Ascites [Fatal]
  - Appendicitis [Fatal]
  - Sepsis [Fatal]
  - Condition aggravated [Fatal]
  - Intentional product misuse [Unknown]
